FAERS Safety Report 8397467-3 (Version None)
Quarter: 2012Q2

REPORT INFORMATION
  Report Type: 
  Country: None (occurrence: None)
  Receive Date: 20120531
  Receipt Date: 20120521
  Transmission Date: 20120825
  Serious: Yes (Other)
  Sender: FDA-Public Use
  Company Number: US-JNJFOC-20120517683

PATIENT
  Sex: Female
  Weight: 52.16 kg

DRUGS (8)
  1. REMICADE [Suspect]
     Indication: JUVENILE ARTHRITIS
     Route: 042
     Dates: start: 20120121
  2. MOBIC [Concomitant]
     Indication: PAIN
     Route: 065
     Dates: start: 20110101
  3. MOBIC [Concomitant]
     Indication: INFLAMMATION
     Route: 065
     Dates: start: 20110101
  4. METHOTREXATE [Concomitant]
     Indication: ARTHRITIS
     Route: 065
     Dates: start: 20110101
  5. CELEBREX [Concomitant]
     Route: 048
     Dates: start: 20100101, end: 20110101
  6. PENICILLIN [Concomitant]
     Indication: STREPTOCOCCAL INFECTION
     Route: 048
     Dates: start: 20090101
  7. PENICILLIN [Concomitant]
     Indication: PNEUMONIA
     Route: 048
     Dates: start: 20090101
  8. OMEPRAZOLE [Concomitant]
     Indication: GASTROOESOPHAGEAL REFLUX DISEASE
     Route: 048
     Dates: start: 20110101

REACTIONS (5)
  - ERYTHEMA [None]
  - WEIGHT INCREASED [None]
  - CHEST PAIN [None]
  - CUSHING'S SYNDROME [None]
  - HYPERTENSION [None]
